FAERS Safety Report 9408364 (Version 2)
Quarter: 2013Q3

REPORT INFORMATION
  Report Type: Report from Study
  Country: FR (occurrence: FR)
  Receive Date: 20130718
  Receipt Date: 20130819
  Transmission Date: 20140515
  Serious: Yes (Hospitalization, Other)
  Sender: FDA-Public Use
  Company Number: FR-CELGENEUS-056-22393-13071033

PATIENT
  Age: 78 Year
  Sex: Male

DRUGS (14)
  1. ISTODAX [Suspect]
     Indication: PERIPHERAL T-CELL LYMPHOMA UNSPECIFIED
     Dosage: 10 MILLIGRAM/SQ. METER
     Route: 065
     Dates: start: 20130426, end: 20130614
  2. CYCLOPHOSPHAMIDE [Concomitant]
     Indication: T-CELL LYMPHOMA
     Route: 065
     Dates: start: 20130426, end: 20130614
  3. ADRIAMYCIN [Concomitant]
     Indication: T-CELL LYMPHOMA
     Route: 065
     Dates: start: 20130426, end: 20130614
  4. VINCRISTINE [Concomitant]
     Indication: T-CELL LYMPHOMA
     Route: 065
     Dates: start: 20130426, end: 20130614
  5. PREDNISONE [Concomitant]
     Indication: T-CELL LYMPHOMA
     Route: 065
     Dates: start: 20130426, end: 20130614
  6. GRANOCYTE [Concomitant]
     Indication: PRODUCT USED FOR UNKNOWN INDICATION
     Route: 065
  7. PACKED BLOOD CELLS [Concomitant]
     Indication: PRODUCT USED FOR UNKNOWN INDICATION
     Route: 041
  8. EUPRESSYL [Concomitant]
     Indication: PRODUCT USED FOR UNKNOWN INDICATION
     Route: 065
  9. KARDEGIC [Concomitant]
     Indication: PRODUCT USED FOR UNKNOWN INDICATION
     Route: 065
  10. JOSIR [Concomitant]
     Indication: PRODUCT USED FOR UNKNOWN INDICATION
     Route: 065
  11. DIFFU K [Concomitant]
     Indication: PRODUCT USED FOR UNKNOWN INDICATION
     Route: 065
  12. ZELITREX [Concomitant]
     Indication: PRODUCT USED FOR UNKNOWN INDICATION
     Route: 065
  13. ZAMADOL [Concomitant]
     Indication: PRODUCT USED FOR UNKNOWN INDICATION
     Route: 065
  14. LASILIX [Concomitant]
     Indication: PRODUCT USED FOR UNKNOWN INDICATION
     Route: 065

REACTIONS (1)
  - Peripheral T-cell lymphoma unspecified [Not Recovered/Not Resolved]
